FAERS Safety Report 14536725 (Version 4)
Quarter: 2020Q1

REPORT INFORMATION
  Report Type: Report from Study
  Country: FR (occurrence: FR)
  Receive Date: 20180215
  Receipt Date: 20200310
  Transmission Date: 20200409
  Serious: Yes (Hospitalization)
  Sender: FDA-Public Use
  Company Number: FR-JNJFOC-20180129938

PATIENT
  Age: 65 Year
  Sex: Female
  Weight: 58 kg

DRUGS (9)
  1. DEXAMETHASONE. [Concomitant]
     Active Substance: DEXAMETHASONE
     Route: 042
     Dates: start: 20171219, end: 20180131
  2. CARFILZOMIB [Suspect]
     Active Substance: CARFILZOMIB
     Indication: PLASMA CELL MYELOMA
     Route: 042
     Dates: start: 20171219
  3. LAMALINE [Concomitant]
     Dates: start: 20171113
  4. COVERAM [Concomitant]
     Active Substance: AMLODIPINE\PERINDOPRIL
     Dates: start: 20110101
  5. PANTOPRAZOLE [Concomitant]
     Active Substance: PANTOPRAZOLE
     Dates: start: 20171113
  6. XYZALL [Concomitant]
     Active Substance: LEVOCETIRIZINE DIHYDROCHLORIDE
     Route: 048
     Dates: start: 20171219
  7. PARACETAMOL [Concomitant]
     Active Substance: ACETAMINOPHEN
     Dosage: 1000 MILLIGRAM, 1 GRAM , AND 1000 MILLIQUIVALENT
     Route: 065
     Dates: start: 20171219
  8. DARATUMUMAB [Suspect]
     Active Substance: DARATUMUMAB
     Indication: PLASMA CELL MYELOMA
     Route: 042
     Dates: start: 20171219
  9. SINGULAIR [Concomitant]
     Active Substance: MONTELUKAST SODIUM
     Route: 048
     Dates: start: 20171219

REACTIONS (2)
  - Hyperthermia [Recovered/Resolved]
  - Hypokalaemia [Recovered/Resolved]

NARRATIVE: CASE EVENT DATE: 20171221
